FAERS Safety Report 4449086-9 (Version None)
Quarter: 2004Q3

REPORT INFORMATION
  Report Type: 
  Country: None (occurrence: None)
  Receive Date: 20040909
  Receipt Date: 20040820
  Transmission Date: 20050211
  Serious: Yes (Other)
  Sender: FDA-Public Use
  Company Number: US_010565996

PATIENT
  Age: 79 Year
  Sex: Male
  Weight: 82 kg

DRUGS (7)
  1. HUMULIN N [Suspect]
     Indication: DIABETES MELLITUS
     Dosage: 19 U/2 DAY
     Dates: start: 19830101, end: 20030101
  2. HUMULIN R [Suspect]
     Indication: DIABETES MELLITUS
     Dosage: 19 U/2 DAY
     Dates: start: 19830101, end: 20030101
  3. HUMULIN U [Suspect]
     Indication: DIABETES MELLITUS
     Dosage: 14 U/1 IN THE EVENING
  4. HUMALOG [Suspect]
     Indication: DIABETES MELLITUS
     Dosage: 16 U DAY
     Dates: start: 19970101
  5. HUMULIN-HUMAN INSULIN (RDNA) UNKNOWN FORMULATION [Suspect]
     Indication: DIABETES MELLITUS
  6. NOVOLIN R [Concomitant]
  7. CARDIZEM CD [Concomitant]

REACTIONS (7)
  - BLOOD GLUCOSE DECREASED [None]
  - BLOOD GLUCOSE INCREASED [None]
  - DIZZINESS [None]
  - DRUG INEFFECTIVE [None]
  - FEELING ABNORMAL [None]
  - MYOCARDIAL INFARCTION [None]
  - WEIGHT DECREASED [None]
